FAERS Safety Report 11572590 (Version 2)
Quarter: 2015Q4

REPORT INFORMATION
  Report Type: Spontaneous
  Country: US (occurrence: US)
  Receive Date: 20150929
  Receipt Date: 20151007
  Transmission Date: 20160304
  Serious: Yes (Other)
  Sender: FDA-Public Use
  Company Number: US-PFIZER INC-2015320885

PATIENT
  Age: 69 Year
  Sex: Male
  Weight: 73 kg

DRUGS (4)
  1. AZOPT [Suspect]
     Active Substance: BRINZOLAMIDE
     Indication: GLAUCOMA
     Dosage: UNK, 3X/DAY
     Dates: start: 20150311
  2. AZOPT [Suspect]
     Active Substance: BRINZOLAMIDE
     Dosage: UNK, 2X/DAY (2 TIMES A DAY FOR 2 MONTHS)
  3. REVATIO [Suspect]
     Active Substance: SILDENAFIL CITRATE
     Indication: CARDIOMYOPATHY
     Dosage: 20 MG, 3X/DAY
     Route: 048
     Dates: start: 201301
  4. TRAVATAN Z [Concomitant]
     Active Substance: TRAVOPROST
     Indication: GLAUCOMA
     Dosage: AT BEDTIME
     Route: 047

REACTIONS (7)
  - Therapeutic response unexpected [Unknown]
  - Vision blurred [Not Recovered/Not Resolved]
  - Product use issue [Unknown]
  - Intraocular pressure fluctuation [Unknown]
  - Visual impairment [Not Recovered/Not Resolved]
  - Cataract [Not Recovered/Not Resolved]
  - Condition aggravated [Not Recovered/Not Resolved]

NARRATIVE: CASE EVENT DATE: 201301
